FAERS Safety Report 7787397-X (Version None)
Quarter: 2011Q3

REPORT INFORMATION
  Report Type: 
  Country: None (occurrence: None)
  Receive Date: 20110929
  Receipt Date: 20110714
  Transmission Date: 20111222
  Serious: No
  Sender: FDA-Public Use
  Company Number: US-BAYER-2011-062508

PATIENT
  Sex: Female
  Weight: 54 kg

DRUGS (10)
  1. ALEVE [Suspect]
     Indication: BACK PAIN
     Dosage: 1-2 TABS AS NEEDED
     Route: 048
     Dates: start: 20110712, end: 20110713
  2. NATUREMADE CALCIUM CARBONATE [Concomitant]
  3. LIPITOR [Concomitant]
  4. DIAZEPAM [Concomitant]
  5. FLAX SEED OIL [Concomitant]
  6. FISH OIL [Concomitant]
  7. CENTRUM SILVER [Concomitant]
  8. ASCORBIC ACID [Concomitant]
  9. IBUPROFEN (ADVIL) [Interacting]
  10. HYDROCODONE [Concomitant]

REACTIONS (2)
  - DRUG ADMINISTRATION ERROR [None]
  - NO ADVERSE EVENT [None]
